FAERS Safety Report 9164157 (Version 1)
Quarter: 2013Q1

REPORT INFORMATION
  Report Type: Spontaneous
  Country: US (occurrence: US)
  Receive Date: 20130315
  Receipt Date: 20130315
  Transmission Date: 20140127
  Serious: No
  Sender: FDA-Public Use
  Company Number: US-009507513-1303USA003407

PATIENT
  Age: 57 Year
  Sex: Female

DRUGS (6)
  1. SAPHRIS [Suspect]
     Indication: BIPOLAR I DISORDER
     Dosage: 10 MG, AT NIGHT
     Route: 060
     Dates: start: 20121105
  2. SAPHRIS [Suspect]
     Dosage: A REGULAR BASIS
     Route: 060
     Dates: start: 20130226
  3. LAMICTAL [Concomitant]
     Indication: BLOOD SODIUM INCREASED
  4. AMBIEN [Concomitant]
  5. XANAX [Concomitant]
  6. VPX REDLINE GEL CAPS [Concomitant]

REACTIONS (3)
  - Abdominal distension [Unknown]
  - Flatulence [Unknown]
  - Blood sodium decreased [Unknown]
